APPROVED DRUG PRODUCT: MEFENAMIC ACID
Active Ingredient: MEFENAMIC ACID
Strength: 250MG
Dosage Form/Route: CAPSULE;ORAL
Application: A209209 | Product #001
Applicant: CHARTWELL RX SCIENCES LLC
Approved: Sep 18, 2020 | RLD: No | RS: No | Type: DISCN